FAERS Safety Report 8070085-2 (Version None)
Quarter: 2012Q1

REPORT INFORMATION
  Report Type: 
  Country: None (occurrence: None)
  Receive Date: 20120119
  Receipt Date: 20120117
  Transmission Date: 20120608
  Serious: Yes (Other)
  Sender: FDA-Public Use
  Company Number: ACO_28566_2011

PATIENT
  Age: 58 Year
  Sex: Female

DRUGS (9)
  1. REBIF [Concomitant]
  2. AMPYRA [Suspect]
     Indication: GAIT DISTURBANCE
     Dosage: 10MG, BID, ORAL
     Route: 048
     Dates: start: 20111024, end: 20111101
  3. ARIMIDEX [Concomitant]
  4. BACLOFEN [Concomitant]
  5. ZANAFLEX [Concomitant]
  6. PAXIL [Concomitant]
  7. PEPCID AC [Concomitant]
  8. PROZAC [Concomitant]
  9. CELEBREX [Concomitant]

REACTIONS (4)
  - AMNESIA [None]
  - URINARY TRACT INFECTION [None]
  - MULTIPLE SCLEROSIS RELAPSE [None]
  - FALL [None]
